FAERS Safety Report 8067151-4 (Version None)
Quarter: 2012Q1

REPORT INFORMATION
  Report Type: 
  Country: None (occurrence: None)
  Receive Date: 20120124
  Receipt Date: 20120120
  Transmission Date: 20120608
  Serious: Yes (Other)
  Sender: FDA-Public Use
  Company Number: BR-BAYER-2011-045412

PATIENT
  Age: 27 Year
  Sex: Female

DRUGS (4)
  1. IRON [Concomitant]
     Indication: VITAMIN SUPPLEMENTATION
     Dosage: 1 DF, QD
     Route: 048
     Dates: start: 20110301
  2. BETASERON [Suspect]
     Dosage: UNK
     Dates: start: 20111201
  3. VITAMIN TAB [Concomitant]
     Indication: VITAMIN SUPPLEMENTATION
     Dosage: 1 DF, QD
     Route: 048
     Dates: start: 20110301
  4. BETASERON [Suspect]
     Indication: MULTIPLE SCLEROSIS
     Dosage: 9.6 MIU, QOD
     Route: 058
     Dates: start: 20050101, end: 20110201

REACTIONS (3)
  - BLOOD PRESSURE DECREASED [None]
  - IMMUNODEFICIENCY [None]
  - DIZZINESS [None]
